FAERS Safety Report 15448445 (Version 1)
Quarter: 2018Q3

REPORT INFORMATION
  Report Type: Spontaneous
  Country: CN (occurrence: CN)
  Receive Date: 20180929
  Receipt Date: 20180929
  Transmission Date: 20181010
  Serious: Yes (Hospitalization)
  Sender: FDA-Public Use
  Company Number: CN-ABBVIE-18K-035-2448534-00

PATIENT
  Age: 28 Year
  Sex: Female

DRUGS (3)
  1. HUMIRA [Suspect]
     Active Substance: ADALIMUMAB
     Indication: UVEITIS
     Dosage: ONCE EVERY THREE OR FOUR WEEKS OR TWO MONTHS
     Route: 058
     Dates: start: 201512, end: 201805
  2. HUMIRA [Suspect]
     Active Substance: ADALIMUMAB
     Indication: ANKYLOSING SPONDYLITIS
     Route: 058
     Dates: start: 20150727, end: 20151130
  3. HUMIRA [Suspect]
     Active Substance: ADALIMUMAB
     Route: 058
     Dates: start: 201806, end: 201807

REACTIONS (4)
  - Hepatitis B [Recovered/Resolved]
  - Eye swelling [Unknown]
  - Eye pain [Unknown]
  - Arthralgia [Unknown]

NARRATIVE: CASE EVENT DATE: 201808
